FAERS Safety Report 10009718 (Version 2)
Quarter: 2014Q1

REPORT INFORMATION
  Report Type: Spontaneous
  Country: US (occurrence: US)
  Receive Date: 20140312
  Receipt Date: 20140312
  Transmission Date: 20141002
  Serious: No
  Sender: FDA-Public Use
  Company Number: US-INCYTE CORPORATION-2012IN002279

PATIENT
  Age: 67 Year
  Sex: Female
  Weight: 74.38 kg

DRUGS (14)
  1. JAKAFI [Suspect]
     Indication: MYELOFIBROSIS
     Dosage: 10 MG, QID
     Route: 048
     Dates: start: 20120507
  2. JAKAFI [Suspect]
     Dosage: 10 MG, TID
     Dates: start: 2013
  3. JAKAFI [Suspect]
     Dosage: 20 MG, BID
  4. JAKAFI [Suspect]
     Dosage: 10 MG Q AM, 20 MG Q HS
     Dates: start: 20120415
  5. HYDREA [Concomitant]
  6. ATIVAN [Concomitant]
     Indication: NERVOUSNESS
     Dosage: 1 MG, QD
  7. ATIVAN [Concomitant]
     Indication: INSOMNIA
  8. ATENOLOL [Concomitant]
     Indication: BLOOD PRESSURE
     Dosage: 25 MG, QD
  9. LEXAPRO [Concomitant]
     Indication: MOOD ALTERED
     Dosage: 20 MG, QD
  10. CALCIUM + VITAMIN D [Concomitant]
     Indication: SUPPLEMENTATION THERAPY
     Dosage: 600MG/400IU TID
  11. FOSAMAX [Concomitant]
     Indication: OSTEOPOROSIS
     Dosage: 70 MG, Q WEEK
  12. PROTONIX [Concomitant]
     Indication: GASTROOESOPHAGEAL REFLUX DISEASE
     Dosage: 40 MG, QD
  13. LEVBID [Concomitant]
     Indication: IRRITABLE BOWEL SYNDROME
     Dosage: 0.375 MG, BID
  14. BENTYL [Concomitant]
     Indication: IRRITABLE BOWEL SYNDROME
     Dosage: 20 MG, BID

REACTIONS (18)
  - Macular degeneration [Unknown]
  - Increased appetite [Unknown]
  - Weight increased [Unknown]
  - Nerve injury [Unknown]
  - Urinary incontinence [Unknown]
  - Faecal incontinence [Unknown]
  - Diarrhoea [Unknown]
  - Flatulence [Unknown]
  - Nightmare [Unknown]
  - Musculoskeletal pain [Unknown]
  - Pain in extremity [Unknown]
  - Paraesthesia [Unknown]
  - Platelet count decreased [Unknown]
  - Visual impairment [None]
  - Dry eye [None]
  - Vision blurred [None]
  - Carpal tunnel syndrome [None]
  - Synovial cyst [None]
